FAERS Safety Report 4294200-1 (Version None)
Quarter: 2004Q1

REPORT INFORMATION
  Report Type: 
  Country: None (occurrence: None)
  Receive Date: 20040211
  Receipt Date: 20040202
  Transmission Date: 20041129
  Serious: Yes (Other)
  Sender: FDA-Public Use
  Company Number: 001-0945-M0000544

PATIENT
  Sex: Female

DRUGS (9)
  1. NEURONTIN [Suspect]
     Indication: MUSCLE CRAMP
     Dosage: 500 MG (DAILY), ORAL
     Route: 048
     Dates: start: 19980101
  2. ACETYLSALICYLIC ACID SRT [Concomitant]
  3. INDOMETHACIN [Concomitant]
  4. AMLODIPINE BESYLATE [Concomitant]
  5. ATENOLOL [Concomitant]
  6. NICOTINIC ACID [Concomitant]
  7. CONJUGATED ESTROGENS [Concomitant]
  8. MAGNESIUM (MAGNESIUM) [Concomitant]
  9. LEVOTHYROXINE SODIUM [Concomitant]

REACTIONS (3)
  - CATARACT [None]
  - MUSCLE CRAMP [None]
  - VISION BLURRED [None]
